FAERS Safety Report 16492717 (Version 3)
Quarter: 2019Q3

REPORT INFORMATION
  Report Type: Report from Study
  Country: GB (occurrence: GB)
  Receive Date: 20190628
  Receipt Date: 20190906
  Transmission Date: 20191004
  Serious: Yes (Other)
  Sender: FDA-Public Use
  Company Number: PHHY2019GB145904

PATIENT
  Age: 31 Year
  Sex: Female

DRUGS (8)
  1. TRAMETINIB [Suspect]
     Active Substance: TRAMETINIB
     Dosage: UNK
     Route: 048
     Dates: start: 20190401
  2. TRAMETINIB [Suspect]
     Active Substance: TRAMETINIB
     Dosage: 1 MG, QD
     Route: 048
     Dates: start: 20190502
  3. TRAMETINIB [Suspect]
     Active Substance: TRAMETINIB
     Indication: BRAIN NEOPLASM
     Dosage: 2 MG, QD
     Route: 048
     Dates: start: 20180102
  4. TRAMETINIB [Suspect]
     Active Substance: TRAMETINIB
     Dosage: (50 % DOSE)
     Route: 048
     Dates: start: 201906
  5. DABRAFENIB [Suspect]
     Active Substance: DABRAFENIB
     Dosage: (50 % DOSE)
     Route: 048
     Dates: start: 201906
  6. DABRAFENIB [Suspect]
     Active Substance: DABRAFENIB
     Dosage: UNK
     Route: 048
     Dates: start: 20190401
  7. DABRAFENIB [Suspect]
     Active Substance: DABRAFENIB
     Indication: BRAIN NEOPLASM
     Dosage: 150 MG, BID
     Route: 048
     Dates: start: 20180102
  8. DABRAFENIB [Suspect]
     Active Substance: DABRAFENIB
     Dosage: 150 MG, QD
     Route: 048
     Dates: start: 20190502

REACTIONS (5)
  - Rash [Recovered/Resolved]
  - Lower respiratory tract infection [Unknown]
  - Brain neoplasm [Unknown]
  - Disease recurrence [Unknown]
  - Arthralgia [Recovered/Resolved]

NARRATIVE: CASE EVENT DATE: 20190101
